FAERS Safety Report 18328047 (Version 1)
Quarter: 2020Q3

REPORT INFORMATION
  Report Type: Spontaneous
  Country: US (occurrence: US)
  Receive Date: 20200930
  Receipt Date: 20200930
  Transmission Date: 20201103
  Serious: No
  Sender: FDA-Public Use
  Company Number: US-009507513-2009USA008758

PATIENT
  Age: 31 Year
  Sex: Female

DRUGS (1)
  1. ETONOGESTREL (+) ETHINYL ESTRADIOL [Suspect]
     Active Substance: ETHINYL ESTRADIOL\ETONOGESTREL
     Indication: OVARIAN CYST
     Dosage: 1 (3 RINGS)
     Route: 067
     Dates: start: 20200920, end: 20200921

REACTIONS (2)
  - Product use in unapproved indication [Unknown]
  - Device breakage [Unknown]

NARRATIVE: CASE EVENT DATE: 20200920
